FAERS Safety Report 5955407-8 (Version None)
Quarter: 2008Q4

REPORT INFORMATION
  Report Type: 
  Country: None (occurrence: None)
  Receive Date: 20081117
  Receipt Date: 20081104
  Transmission Date: 20090506
  Serious: Yes (Other)
  Sender: FDA-Public Use
  Company Number: TW-GENENTECH-271069

PATIENT

DRUGS (1)
  1. BEVACIZUMAB [Suspect]
     Indication: METASTATIC NEOPLASM
     Dosage: UNK

REACTIONS (1)
  - NEUROPATHY PERIPHERAL [None]
